FAERS Safety Report 23149982 (Version 1)
Quarter: 2023Q4

REPORT INFORMATION
  Report Type: Spontaneous
  Country: CN (occurrence: CN)
  Receive Date: 20231106
  Receipt Date: 20231106
  Transmission Date: 20240110
  Serious: Yes (Hospitalization, Disabling)
  Sender: FDA-Public Use
  Company Number: CN-ABBVIE-5477333

PATIENT
  Sex: Male
  Weight: 76 kg

DRUGS (5)
  1. VENETOCLAX [Suspect]
     Active Substance: VENETOCLAX
     Indication: Acute myeloid leukaemia
     Dosage: 200 MILLIGRAM,?DURATION TEXT: D2
     Route: 048
     Dates: start: 20230929, end: 20230929
  2. VENETOCLAX [Suspect]
     Active Substance: VENETOCLAX
     Indication: Acute myeloid leukaemia
     Dosage: 100 MILLIGRAM,?DURATION TEXT: D1
     Route: 048
     Dates: start: 20230928, end: 20230928
  3. VENETOCLAX [Suspect]
     Active Substance: VENETOCLAX
     Indication: Acute myeloid leukaemia
     Dosage: 400 MILLIGRAM
     Route: 048
     Dates: start: 20230930, end: 20231003
  4. AZACITIDINE [Suspect]
     Active Substance: AZACITIDINE
     Indication: Acute myeloid leukaemia
     Dosage: 0.1 GRAM,?FOR INJECTION
     Route: 065
     Dates: start: 20230928, end: 20231004
  5. CYTARABINE [Suspect]
     Active Substance: CYTARABINE
     Indication: Acute myeloid leukaemia
     Dosage: 0.05 GRAM,?FOR INJECTION
     Route: 065
     Dates: start: 20230924, end: 20230927

REACTIONS (2)
  - Myelosuppression [Recovering/Resolving]
  - Mouth haemorrhage [Unknown]

NARRATIVE: CASE EVENT DATE: 20230101
